FAERS Safety Report 20601799 (Version 2)
Quarter: 2022Q1

REPORT INFORMATION
  Report Type: Spontaneous
  Country: FR (occurrence: FR)
  Receive Date: 20220316
  Receipt Date: 20220325
  Transmission Date: 20220423
  Serious: Yes (Other)
  Sender: FDA-Public Use
  Company Number: FR-LAV-2021-00175

PATIENT
  Age: 72 Year
  Sex: Male

DRUGS (18)
  1. FENTANYL [Suspect]
     Active Substance: FENTANYL
     Indication: Neck pain
     Dosage: 1 DOSAGE FORM, Q3D 1 PATCH EVERY 3 DAYS, LOCALLY
     Route: 062
     Dates: end: 2020
  2. FENTANYL [Suspect]
     Active Substance: FENTANYL
     Indication: Neck pain
     Dosage: 1 DOSAGE FORM, Q3D 1 PATCH EVERY 3 DAYS, LOCALLY
     Route: 062
     Dates: start: 2018
  3. PREGABALIN [Suspect]
     Active Substance: PREGABALIN
     Indication: Neck pain
     Dosage: 75 MG AT 9AM, 25 MG AT 1PM AND 150 MG AT 22PM
     Route: 048
     Dates: start: 2020, end: 2021
  4. DULOXETINE [Suspect]
     Active Substance: DULOXETINE
     Indication: Neck pain
     Dosage: START DATE 2021
     Route: 048
  5. DEXKETOPROFEN\TRAMADOL [Concomitant]
     Active Substance: DEXKETOPROFEN\TRAMADOL
     Indication: Back pain
     Dosage: UNK UNK, QY 2 TIMES PER YEAR MAXIMUM
  6. ZOLMITRIPTAN [Concomitant]
     Active Substance: ZOLMITRIPTAN
     Indication: Migraine
     Dosage: 2 TO 3 TABLETS DAILY FOR 3 DAYS AT MAXIMUM ABOUT 2 TO 3 TIMES A YEAR
  7. ALPRAZOLAM [Concomitant]
     Active Substance: ALPRAZOLAM
     Dosage: 1 DOSAGE FORM 1 MOST NIGHTS
  8. IBUPROFEN [Concomitant]
     Active Substance: IBUPROFEN
     Indication: Pain
     Dosage: OCCASIONAL USE
  9. IBUPROFEN [Concomitant]
     Active Substance: IBUPROFEN
     Indication: Inflammation
  10. OMEPRAZOLE [Concomitant]
     Active Substance: OMEPRAZOLE
     Indication: Dyspepsia
     Dosage: UNK UNK, QD FOR ABOUT 10 YEARS
  11. ACETAMINOPHEN [Concomitant]
     Active Substance: ACETAMINOPHEN
     Indication: Pain
     Dosage: OCCASIONAL USE
  12. ACETAMINOPHEN [Concomitant]
     Active Substance: ACETAMINOPHEN
     Indication: Inflammation
  13. COCODAMOL [Concomitant]
     Active Substance: ACETAMINOPHEN\CODEINE PHOSPHATE
     Indication: Pain
     Dosage: OCCASIONAL USE
  14. COCODAMOL [Concomitant]
     Active Substance: ACETAMINOPHEN\CODEINE PHOSPHATE
     Indication: Inflammation
  15. DOLIPRANE [Concomitant]
     Active Substance: ACETAMINOPHEN
     Indication: Pain
     Dosage: OCCASIONAL USE
  16. ACETAMINOPHEN\CODEINE PHOSPHATE [Concomitant]
     Active Substance: ACETAMINOPHEN\CODEINE PHOSPHATE
     Indication: Pain
     Dosage: OCCASIONAL USE
  17. XARELTO [Concomitant]
     Active Substance: RIVAROXABAN
     Dosage: 1 DOSAGE FORM, QD (1 DAILY FOR 7 DAYS )
  18. BETAHISTINE [Concomitant]
     Active Substance: BETAHISTINE
     Dosage: 1 TO 3 DFS PER DAY, WITH 2 INTERRUPTIONS

REACTIONS (7)
  - Deep vein thrombosis [Recovered/Resolved]
  - Antisocial behaviour [Recovering/Resolving]
  - Disturbance in attention [Recovering/Resolving]
  - Visual impairment [Recovering/Resolving]
  - Lethargy [Recovering/Resolving]
  - Vertigo [Recovering/Resolving]
  - Drug withdrawal syndrome [Recovered/Resolved]

NARRATIVE: CASE EVENT DATE: 20200101
